FAERS Safety Report 19674675 (Version 1)
Quarter: 2021Q3

REPORT INFORMATION
  Report Type: Spontaneous
  Country: CN (occurrence: CN)
  Receive Date: 20210809
  Receipt Date: 20210809
  Transmission Date: 20211014
  Serious: Yes (Hospitalization)
  Sender: FDA-Public Use
  Company Number: CN-BAYER-2021-186617

PATIENT
  Age: 51 Year
  Sex: Male

DRUGS (6)
  1. ACETYLSALICYLIC ACID [Interacting]
     Active Substance: ASPIRIN
     Dosage: 100 MG, QD
     Route: 048
  2. MOXIFLOXACIN IV [Suspect]
     Active Substance: MOXIFLOXACIN
     Indication: VASCULAR DEVICE INFECTION
     Dosage: 250 ML, QD
     Route: 042
  3. CLOPIDOGREL [Interacting]
     Active Substance: CLOPIDOGREL BISULFATE
     Dosage: 75 MG, QD
     Route: 048
  4. LOW MOLECULAR WEIGHT HEPARIN [Interacting]
     Active Substance: UNSPECIFIED INGREDIENT
     Dosage: 4100 IU, QD
     Route: 058
  5. LOW MOLECULAR WEIGHT HEPARIN [Interacting]
     Active Substance: UNSPECIFIED INGREDIENT
     Dosage: 4100 IU
     Route: 058
  6. MOXIFLOXACIN IV [Suspect]
     Active Substance: MOXIFLOXACIN
     Indication: VASCULAR DEVICE INFECTION
     Dosage: 250 ML, QD
     Route: 042

REACTIONS (3)
  - Labelled drug-drug interaction medication error [None]
  - Procedural haemorrhage [None]
  - Off label use [None]
